FAERS Safety Report 21608415 (Version 1)
Quarter: 2022Q4

REPORT INFORMATION
  Report Type: Spontaneous
  Country: US (occurrence: None)
  Receive Date: 20221116
  Receipt Date: 20221116
  Transmission Date: 20230113
  Serious: No
  Sender: FDA-Public Use
  Company Number: None

PATIENT
  Age: 41 Year
  Sex: Female

DRUGS (1)
  1. OPSUMIT [Suspect]
     Active Substance: MACITENTAN
     Indication: Pulmonary arterial hypertension
     Dosage: 10MG  QD ORAL?
     Route: 048
     Dates: start: 20190607

REACTIONS (3)
  - Dehydration [None]
  - Chronic kidney disease [None]
  - Cardiac failure congestive [None]

NARRATIVE: CASE EVENT DATE: 20221115
